FAERS Safety Report 19809920 (Version 1)
Quarter: 2021Q3

REPORT INFORMATION
  Report Type: Spontaneous
  Country: CA (occurrence: CA)
  Receive Date: 20210909
  Receipt Date: 20210909
  Transmission Date: 20211014
  Serious: Yes (Death)
  Sender: FDA-Public Use
  Company Number: CA-TEVA-2021-CA-1948778

PATIENT
  Age: 76 Year
  Sex: Female

DRUGS (16)
  1. PREGABALIN. [Concomitant]
     Active Substance: PREGABALIN
  2. VITAMIN C [Concomitant]
     Active Substance: ASCORBIC ACID
  3. VOLIBRIS [Concomitant]
     Active Substance: AMBRISENTAN
  4. RABEPRAZOLE [Concomitant]
     Active Substance: RABEPRAZOLE
  5. SPIRIVA [Concomitant]
     Active Substance: TIOTROPIUM BROMIDE MONOHYDRATE
  6. SILDENAFIL CITRATE. [Suspect]
     Active Substance: SILDENAFIL CITRATE
     Indication: PULMONARY ARTERIAL HYPERTENSION
     Dosage: 60 MILLIGRAM DAILY;
     Route: 048
  7. VENTOLIN [Concomitant]
     Active Substance: ALBUTEROL SULFATE
  8. ASA [Concomitant]
     Active Substance: ASPIRIN
  9. CLOFIBRATE [Concomitant]
     Active Substance: CLOFIBRATE
  10. IRON [Concomitant]
     Active Substance: IRON
  11. VITAMIN D3 [Concomitant]
     Active Substance: CHOLECALCIFEROL
  12. METOPROLOL. [Concomitant]
     Active Substance: METOPROLOL
  13. ULORIC [Concomitant]
     Active Substance: FEBUXOSTAT
  14. VITAMIN B12 [Concomitant]
     Active Substance: CYANOCOBALAMIN
  15. INSULIN [Concomitant]
     Active Substance: INSULIN NOS
  16. ROSUVASTATIN. [Concomitant]
     Active Substance: ROSUVASTATIN

REACTIONS (2)
  - Nasopharyngitis [Fatal]
  - Death [Fatal]
